FAERS Safety Report 21474085 (Version 1)
Quarter: 2022Q4

REPORT INFORMATION
  Report Type: Spontaneous
  Country: US (occurrence: US)
  Receive Date: 20221018
  Receipt Date: 20221018
  Transmission Date: 20230113
  Serious: Yes (Other)
  Sender: FDA-Public Use
  Company Number: US-ALLERGAN-2233558US

PATIENT
  Sex: Male

DRUGS (12)
  1. CELEXA [Suspect]
     Active Substance: CITALOPRAM HYDROBROMIDE
     Indication: Product used for unknown indication
     Dosage: UNK
  2. ORGOVYX [Suspect]
     Active Substance: RELUGOLIX
     Indication: Prostate cancer
     Dosage: 120 MG, QD
     Route: 048
     Dates: start: 20220728
  3. ORGOVYX [Suspect]
     Active Substance: RELUGOLIX
     Dosage: 360 MG
     Route: 048
     Dates: start: 20220727
  4. ACETAMINOPHEN\HYDROCODONE BITARTRATE [Concomitant]
     Active Substance: ACETAMINOPHEN\HYDROCODONE BITARTRATE
     Dosage: 10/325 MG
  5. FINASTERIDE [Concomitant]
     Active Substance: FINASTERIDE
     Dosage: 5 MG
  6. GABAPENTIN [Concomitant]
     Active Substance: GABAPENTIN
     Dosage: 300 MG
  7. LATANOPROST [Concomitant]
     Active Substance: LATANOPROST
     Route: 047
  8. LISINOPRIL [Concomitant]
     Active Substance: LISINOPRIL
     Dosage: 10 MG
  9. PREDNISONE [Concomitant]
     Active Substance: PREDNISONE
     Dosage: 10 MG
  10. ASPIRIN [Concomitant]
     Active Substance: ASPIRIN
     Dosage: 325 MG
  11. CYMBALTA [Concomitant]
     Active Substance: DULOXETINE HYDROCHLORIDE
  12. XTANDI [Concomitant]
     Active Substance: ENZALUTAMIDE
     Dosage: 40 MG

REACTIONS (4)
  - Metastases to spine [Unknown]
  - Hot flush [Unknown]
  - Fatigue [Unknown]
  - Back pain [Unknown]
